FAERS Safety Report 9989867 (Version 1)
Quarter: 2014Q1

REPORT INFORMATION
  Report Type: Report from Study
  Country: US (occurrence: US)
  Receive Date: 20140310
  Receipt Date: 20140310
  Transmission Date: 20141002
  Serious: No
  Sender: FDA-Public Use
  Company Number: US-ABBVIE-13P-163-1132729-00

PATIENT
  Age: 27 Year
  Sex: Female
  Weight: 127.12 kg

DRUGS (2)
  1. HUMIRA [Suspect]
     Indication: PSORIASIS
     Dates: start: 201209, end: 201211
  2. HUMIRA [Suspect]
     Dates: start: 201302, end: 201304

REACTIONS (3)
  - Nasopharyngitis [Recovered/Resolved]
  - Lower respiratory tract infection [Recovered/Resolved]
  - Sinusitis [Recovered/Resolved]
